FAERS Safety Report 9053330 (Version 1)
Quarter: 2013Q1

REPORT INFORMATION
  Report Type: Spontaneous
  Country: TR (occurrence: TR)
  Receive Date: 20130207
  Receipt Date: 20130207
  Transmission Date: 20140127
  Serious: Yes (Other)
  Sender: FDA-Public Use
  Company Number: PHHY2012TR056316

PATIENT
  Sex: Male
  Weight: 1.58 kg

DRUGS (3)
  1. HYDRALAZINE [Suspect]
     Indication: HYPERTENSION
     Route: 064
  2. NIFEDIPINE [Suspect]
     Indication: HYPERTENSION
     Route: 064
  3. ALPHA METHYLDOPA [Suspect]
     Indication: HYPERTENSION
     Route: 064

REACTIONS (4)
  - Low birth weight baby [Unknown]
  - Foetal exposure during pregnancy [Unknown]
  - Caesarean section [None]
  - Maternal drugs affecting foetus [None]
